FAERS Safety Report 13070273 (Version 3)
Quarter: 2017Q2

REPORT INFORMATION
  Report Type: Report from Study
  Country: CA (occurrence: CA)
  Receive Date: 20161228
  Receipt Date: 20170414
  Transmission Date: 20170830
  Serious: Yes (Other)
  Sender: FDA-Public Use
  Company Number: CA-AMGEN-CANSL2016181092

PATIENT
  Age: 63 Year
  Sex: Female
  Weight: 92.3 kg

DRUGS (5)
  1. VITAMIN D [Concomitant]
     Active Substance: CHOLECALCIFEROL
     Dosage: 10000 IU, QWK
  2. ENBREL [Suspect]
     Active Substance: ETANERCEPT
     Indication: RHEUMATOID ARTHRITIS
     Dosage: 50 MG, QWK
     Route: 065
     Dates: start: 20161020, end: 20170120
  3. BISOPROLOL [Concomitant]
     Active Substance: BISOPROLOL
     Dosage: 5 MG, QD
  4. CALCIUM [Concomitant]
     Active Substance: CALCIUM
     Dosage: 500 MG, QD
  5. FOLIC ACID. [Concomitant]
     Active Substance: FOLIC ACID
     Dosage: UNK, QD

REACTIONS (10)
  - Deafness [Unknown]
  - Dysphonia [Recovered/Resolved]
  - Influenza like illness [Not Recovered/Not Resolved]
  - Tinnitus [Unknown]
  - Aphonia [Recovered/Resolved]
  - Ear disorder [Unknown]
  - Eustachian tube disorder [Unknown]
  - Immunosuppression [Not Recovered/Not Resolved]
  - Rhinitis [Unknown]
  - Asthenia [Not Recovered/Not Resolved]

NARRATIVE: CASE EVENT DATE: 2016
